FAERS Safety Report 6835783-4 (Version None)
Quarter: 2010Q3

REPORT INFORMATION
  Report Type: 
  Country: None (occurrence: None)
  Receive Date: 20100713
  Receipt Date: 20100708
  Transmission Date: 20110219
  Serious: Yes (Hospitalization)
  Sender: FDA-Public Use
  Company Number: FR-WYE-G04793909

PATIENT
  Sex: Male
  Weight: 72 kg

DRUGS (9)
  1. TORISEL [Suspect]
     Indication: RENAL CANCER METASTATIC
     Dosage: 1 INJECTION OF 25 MG
     Route: 042
     Dates: start: 20091026, end: 20091026
  2. COVERSYL [Concomitant]
     Route: 048
     Dates: start: 20050101
  3. VASTAREL [Concomitant]
     Route: 048
  4. ALLOPURINOL [Concomitant]
     Dates: start: 20071001
  5. FUROSEMIDE [Concomitant]
     Dosage: 120 MG TOTAL DAILY
     Route: 048
  6. DAFALGAN [Concomitant]
     Route: 048
     Dates: start: 20000101
  7. BETAHISTINE [Concomitant]
     Dates: start: 20050101
  8. PREVISCAN [Concomitant]
     Dosage: HALF A DOSE (FREQUENCY UNKNOWN)
     Route: 048
     Dates: start: 19890101
  9. BISOPROLOL [Concomitant]
     Route: 048
     Dates: start: 19940101

REACTIONS (1)
  - THROMBOCYTOPENIA [None]
